FAERS Safety Report 7462042-1 (Version None)
Quarter: 2011Q2

REPORT INFORMATION
  Report Type: 
  Country: None (occurrence: None)
  Receive Date: 20110506
  Receipt Date: 20090115
  Transmission Date: 20111010
  Serious: Yes (Other)
  Sender: FDA-Public Use
  Company Number: US-BAYER-2011-008777

PATIENT
  Age: 62 Year
  Sex: Female
  Weight: 95.238 kg

DRUGS (31)
  1. ZOCOR [Concomitant]
     Dosage: 40 MG, QD
     Route: 048
  2. PROTAMINE SULFATE [Concomitant]
     Dosage: 250 MG, UNK
     Route: 042
     Dates: start: 20050909
  3. HEPARIN [Concomitant]
     Dosage: 5000 U, UNK
     Route: 042
     Dates: start: 20050909
  4. GENTAMICIN [Concomitant]
     Dosage: 80 MG, UNK
     Route: 042
     Dates: start: 20050909
  5. TRASYLOL [Suspect]
     Indication: CORONARY ARTERY BYPASS
     Dosage: 50 ML, Q1HR
     Route: 042
     Dates: start: 20050909, end: 20050909
  6. MAGNESIUM SULFATE [Concomitant]
     Dosage: 1 UNK, UNK
     Route: 042
     Dates: start: 20050909
  7. HYDROCHLOROTHIAZIDE [Concomitant]
     Dosage: 37.5-25
     Route: 048
  8. ACETYLSALICYLIC ACID SRT [Concomitant]
     Dosage: 81 MG, QD
     Route: 048
  9. ZETIA [Concomitant]
     Dosage: 10 MG, QD
     Route: 048
  10. PLATELETS [Concomitant]
     Dosage: 10 PACKS
     Route: 042
     Dates: start: 20050909
  11. FENTANYL [Concomitant]
     Dosage: 2-3 MG
     Route: 042
     Dates: start: 20050909
  12. INSULIN [Concomitant]
     Dosage: 10-20 U/HR
     Route: 041
     Dates: start: 20050909
  13. KEFZOL [Concomitant]
     Dosage: 2 G, UNK
     Route: 042
     Dates: start: 20050909
  14. NEXIUM [Concomitant]
     Dosage: 40 MG, BID
     Route: 048
  15. POTASSIUM CHLORIDE [Concomitant]
     Dosage: 20 MEQ/ONE TWICE A DAY
     Route: 048
  16. NALOXONE [Concomitant]
     Dosage: 5MG AS NEEDED
     Route: 048
  17. PROPOFOL [Concomitant]
     Dosage: 100 MG, UNK
     Route: 042
     Dates: start: 20050909
  18. TRIAMTERENE [Concomitant]
     Dosage: 37.5-25/ONE DAILY
     Route: 048
  19. HUMALIN [Concomitant]
     Dosage: 70-30/40 UNITS SUBCUTANEOUS/EVENING
     Route: 058
  20. PENTAZOCINE LACTATE [Concomitant]
     Dosage: 5MG AS NEEDED
     Route: 048
  21. NITROGLYCERIN [Concomitant]
     Dosage: 10-30 MICROG/MIN
     Route: 041
     Dates: start: 20050909
  22. EPINEPHRINE [Concomitant]
     Dosage: UNK
     Route: 041
     Dates: start: 20050909
  23. VERSED [Concomitant]
     Dosage: 2 MG, UNK
     Route: 042
     Dates: start: 20050909
  24. HEPARIN [Concomitant]
     Dosage: 22000 U
     Route: 042
     Dates: start: 20050909
  25. TRASYLOL [Suspect]
     Dosage: 200 ML LOADING DOSE
     Route: 042
     Dates: start: 20050909, end: 20050909
  26. TRASYLOL [Suspect]
     Dosage: 1 ML INITIAL TEST DOSE
     Route: 042
     Dates: start: 20050909, end: 20050909
  27. AMIODARONE [Concomitant]
     Dosage: 33 ML, Q1HR
     Route: 041
     Dates: start: 20050909
  28. DOBUTAMINE HYDROCHLORIDE [Concomitant]
     Dosage: 1 MICROGRAM/KG/MIN
     Route: 041
     Dates: start: 20050909
  29. PLAVIX [Concomitant]
     Dosage: 75 MG, QD
     Route: 048
  30. ATROVENT [Concomitant]
     Dosage: 2 PUFFS, TID
     Route: 055
  31. PLASMA [Concomitant]
     Dosage: 2 U, UNK
     Route: 042
     Dates: start: 20050909

REACTIONS (12)
  - MULTI-ORGAN FAILURE [None]
  - PAIN [None]
  - RENAL FAILURE [None]
  - EMOTIONAL DISTRESS [None]
  - INJURY [None]
  - CEREBROVASCULAR ACCIDENT [None]
  - STRESS [None]
  - RENAL IMPAIRMENT [None]
  - ANXIETY [None]
  - UNEVALUABLE EVENT [None]
  - RENAL INJURY [None]
  - FEAR [None]
